FAERS Safety Report 6406442-7 (Version None)
Quarter: 2009Q4

REPORT INFORMATION
  Report Type: 
  Country: None (occurrence: None)
  Receive Date: 20091014
  Receipt Date: 20091007
  Transmission Date: 20100525
  Serious: Yes (Hospitalization, Other)
  Sender: FDA-Public Use
  Company Number: SPV1-2009-01322

PATIENT
  Age: 21 Year
  Sex: Female
  Weight: 64 kg

DRUGS (4)
  1. VYVANSE [Suspect]
     Indication: ATTENTION DEFICIT/HYPERACTIVITY DISORDER
     Dosage: 140 MG (TWO 70MG CAPSULES DAILY), 1X/DAY:QD, ORAL; 70 MG, 1X/DAY:GD, ORAL
     Route: 048
     Dates: start: 20090401, end: 20090622
  2. VYVANSE [Suspect]
     Indication: ATTENTION DEFICIT/HYPERACTIVITY DISORDER
     Dosage: 140 MG (TWO 70MG CAPSULES DAILY), 1X/DAY:QD, ORAL; 70 MG, 1X/DAY:GD, ORAL
     Route: 048
     Dates: start: 20090623, end: 20090623
  3. SEROQUEL [Concomitant]
  4. DIHYDROERGOTAMINE (DIHYDROERGOTAMINE) NASAL SPRAY [Concomitant]

REACTIONS (14)
  - ACUTE PULMONARY OEDEMA [None]
  - BACK PAIN [None]
  - CARDIAC FAILURE [None]
  - CLUSTER HEADACHE [None]
  - COUGH [None]
  - DYSURIA [None]
  - HEART RATE INCREASED [None]
  - MALAISE [None]
  - NAUSEA [None]
  - OVERDOSE [None]
  - PANCYTOPENIA [None]
  - PYREXIA [None]
  - RESPIRATORY RATE INCREASED [None]
  - VOMITING [None]
